FAERS Safety Report 8984888 (Version 1)
Quarter: 2012Q4

REPORT INFORMATION
  Report Type: 
  Country: US (occurrence: US)
  Receive Date: 20121226
  Receipt Date: 20121226
  Transmission Date: 20130627
  Serious: No
  Sender: FDA-Public Use
  Company Number: US-PFIZER INC-2012323827

PATIENT
  Age: 68 Year
  Sex: Male
  Weight: 81.63 kg

DRUGS (2)
  1. NARDIL [Suspect]
     Indication: DEPRESSION
     Dosage: 15 mg, 3x/day
     Route: 048
  2. ALPRAZOLAM [Concomitant]
     Dosage: UNK, 2x/day

REACTIONS (2)
  - Weight increased [Unknown]
  - Malaise [Unknown]
